FAERS Safety Report 9606575 (Version 1)
Quarter: 2013Q4

REPORT INFORMATION
  Report Type: Spontaneous
  Country: US (occurrence: US)
  Receive Date: 20131008
  Receipt Date: 20131008
  Transmission Date: 20140711
  Serious: No
  Sender: FDA-Public Use
  Company Number: US-AMGEN-USASP2013059556

PATIENT
  Age: 57 Year
  Sex: Female

DRUGS (7)
  1. PROLIA [Suspect]
     Indication: OSTEOPOROSIS POSTMENOPAUSAL
     Dosage: UNK
     Route: 065
     Dates: start: 201209
  2. ARMOUR THYROID [Concomitant]
     Dosage: UNK
  3. PROBIOTIC                          /06395501/ [Concomitant]
     Dosage: UNK
  4. CALCIUM [Concomitant]
     Dosage: UNK
  5. MIACALCIN [Concomitant]
     Indication: OSTEOPOROSIS
     Dosage: UNK
  6. XYZAL [Concomitant]
     Indication: URTICARIA
  7. XYZAL [Concomitant]
     Indication: PYREXIA

REACTIONS (5)
  - Hypersensitivity [Unknown]
  - Pyrexia [Not Recovered/Not Resolved]
  - Tremor [Not Recovered/Not Resolved]
  - Nasopharyngitis [Not Recovered/Not Resolved]
  - Arthralgia [Not Recovered/Not Resolved]
